FAERS Safety Report 6498756-X (Version None)
Quarter: 2009Q4

REPORT INFORMATION
  Report Type: 
  Country: None (occurrence: None)
  Receive Date: 20091215
  Receipt Date: 20091203
  Transmission Date: 20100525
  Serious: Yes (Hospitalization, Other)
  Sender: FDA-Public Use
  Company Number: PHHY2009JP30850

PATIENT
  Age: 79 Year
  Sex: Male

DRUGS (8)
  1. AMN107 AMN+CAP [Suspect]
     Indication: CHRONIC MYELOID LEUKAEMIA
     Dosage: 800 MG DAILY
     Route: 048
     Dates: start: 20090708, end: 20090721
  2. AMN107 AMN+CAP [Interacting]
     Dosage: 400 MG DAILY
     Route: 048
     Dates: start: 20090803, end: 20090818
  3. AMN107 AMN+CAP [Interacting]
     Dosage: 200 MG DAILY
     Route: 048
     Dates: start: 20090819, end: 20090826
  4. AMN107 AMN+CAP [Interacting]
     Dosage: 100 MG DAILY
     Route: 048
     Dates: start: 20090831, end: 20090904
  5. CLARITH [Interacting]
     Dosage: 400 MG DAILY
     Route: 048
     Dates: start: 20090718, end: 20090722
  6. HERBESSOR R [Concomitant]
     Indication: HYPERTENSION
     Dosage: 100 MG, UNK
     Route: 048
     Dates: start: 20070620
  7. RIZE [Concomitant]
     Dosage: 5 MG, UNK
     Route: 048
     Dates: start: 20070620
  8. GASTER D [Concomitant]
     Dosage: 20 MG, UNK
     Route: 048
     Dates: start: 20070815

REACTIONS (13)
  - BLOOD POTASSIUM DECREASED [None]
  - C-REACTIVE PROTEIN INCREASED [None]
  - DRUG INTERACTION [None]
  - DRUG LEVEL INCREASED [None]
  - HAEMATOCRIT DECREASED [None]
  - HAEMOGLOBIN DECREASED [None]
  - LIVER DISORDER [None]
  - LYMPHOCYTE COUNT DECREASED [None]
  - PLATELET COUNT DECREASED [None]
  - PLEURAL EFFUSION [None]
  - PYREXIA [None]
  - RED BLOOD CELL COUNT DECREASED [None]
  - RENAL DISORDER [None]
